FAERS Safety Report 10567073 (Version 1)
Quarter: 2014Q4

REPORT INFORMATION
  Report Type: Report from Study
  Country: NL (occurrence: NL)
  Receive Date: 20141105
  Receipt Date: 20141105
  Transmission Date: 20150529
  Serious: Yes (Hospitalization)
  Sender: FDA-Public Use
  Company Number: NL-ABBVIE-14P-114-1302230-00

PATIENT
  Age: 72 Year
  Sex: Male
  Weight: 103 kg

DRUGS (1)
  1. LUCRIN [Suspect]
     Active Substance: LEUPROLIDE ACETATE
     Indication: PROSTATE CANCER
     Route: 058
     Dates: start: 20140813

REACTIONS (1)
  - Prostatic operation [Recovered/Resolved]

NARRATIVE: CASE EVENT DATE: 201410
